FAERS Safety Report 4498354-3 (Version None)
Quarter: 2004Q4

REPORT INFORMATION
  Report Type: 
  Country: None (occurrence: None)
  Receive Date: 20041105
  Receipt Date: 20041025
  Transmission Date: 20050328
  Serious: Yes (Hospitalization)
  Sender: FDA-Public Use
  Company Number: JPT 2004 0004

PATIENT
  Age: 56 Year
  Sex: Female

DRUGS (1)
  1. OXILAN-350 [Suspect]
     Indication: COMPUTERISED TOMOGRAM
     Dosage: 100 ML
     Dates: start: 20041021

REACTIONS (7)
  - BLOOD PRESSURE INCREASED [None]
  - HEADACHE [None]
  - HYPOAESTHESIA ORAL [None]
  - MUSCLE CRAMP [None]
  - PERIPHERAL COLDNESS [None]
  - SENSATION OF PRESSURE [None]
  - SENSORY DISTURBANCE [None]
